FAERS Safety Report 20629621 (Version 3)
Quarter: 2022Q2

REPORT INFORMATION
  Report Type: Report from Study
  Country: GB (occurrence: GB)
  Receive Date: 20220323
  Receipt Date: 20220512
  Transmission Date: 20220721
  Serious: Yes (Hospitalization)
  Sender: FDA-Public Use
  Company Number: GB-ABBVIE-22P-167-4318973-00

PATIENT
  Age: 5 Year
  Sex: Male
  Weight: 15.4 kg

DRUGS (25)
  1. VENETOCLAX [Suspect]
     Active Substance: VENETOCLAX
     Indication: Neoplasm malignant
     Route: 050
     Dates: start: 20220119, end: 20220119
  2. VENETOCLAX [Suspect]
     Active Substance: VENETOCLAX
     Route: 050
     Dates: start: 20220120
  3. TOPOTECAN HYDROCHLORIDE [Suspect]
     Active Substance: TOPOTECAN HYDROCHLORIDE
     Indication: Neoplasm malignant
     Dosage: 5 DAYS EVERY 21 DAYS
     Route: 042
     Dates: start: 20220121
  4. CYCLOPHOSPHAMIDE [Suspect]
     Active Substance: CYCLOPHOSPHAMIDE
     Indication: Neoplasm malignant
     Dosage: 5 DAYS EVERY 21 DAYS
     Route: 042
     Dates: start: 20220121
  5. COTRIMOXAZOLE [Concomitant]
     Active Substance: SULFAMETHOXAZOLE\TRIMETHOPRIM
     Indication: Infection prophylaxis
     Dosage: BD ON MONDAY AND TUESDAY
     Route: 048
     Dates: start: 20220119
  6. LOPERAMIDE [Concomitant]
     Active Substance: LOPERAMIDE
     Indication: Prophylaxis against diarrhoea
     Route: 048
     Dates: start: 20220119
  7. ONDANSETRON [Concomitant]
     Active Substance: ONDANSETRON
     Indication: Prophylaxis of nausea and vomiting
     Dosage: TID
     Route: 048
     Dates: start: 20220119
  8. ONDANSETRON [Concomitant]
     Active Substance: ONDANSETRON
     Route: 042
     Dates: start: 20220123
  9. PREGABALIN [Concomitant]
     Active Substance: PREGABALIN
     Indication: Pain prophylaxis
     Route: 048
     Dates: start: 20220119
  10. PREGABALIN [Concomitant]
     Active Substance: PREGABALIN
     Indication: Pain prophylaxis
  11. PREGABALIN [Concomitant]
     Active Substance: PREGABALIN
     Indication: Pain prophylaxis
  12. PREGABALIN [Concomitant]
     Active Substance: PREGABALIN
     Indication: Pain prophylaxis
  13. SELENIUM ORAL SOLUTION [Concomitant]
     Indication: Prophylaxis
     Dosage: PEG TUBE
     Dates: start: 20220119
  14. ZINC SULFATE [Concomitant]
     Active Substance: ZINC SULFATE
     Indication: Prophylaxis
     Dosage: PEG TUBE
     Dates: start: 20220119
  15. CHOLECALCIFEROL [Concomitant]
     Active Substance: CHOLECALCIFEROL
     Indication: Prophylaxis
     Route: 048
     Dates: start: 20220123
  16. CYCLIZINE [Concomitant]
     Active Substance: CYCLIZINE
     Indication: Prophylaxis of nausea and vomiting
     Route: 042
     Dates: start: 20220123
  17. MESNA [Concomitant]
     Active Substance: MESNA
     Indication: Haematuria
     Route: 042
     Dates: start: 20220124
  18. PIPERACILLIN SODIUM\TAZOBACTAM SODIUM [Concomitant]
     Active Substance: PIPERACILLIN SODIUM\TAZOBACTAM SODIUM
     Indication: Febrile neutropenia
     Route: 042
     Dates: start: 20220130
  19. AMIKACIN [Concomitant]
     Active Substance: AMIKACIN
     Indication: Febrile neutropenia
     Route: 042
     Dates: start: 20220130
  20. AMIKACIN [Concomitant]
     Active Substance: AMIKACIN
     Indication: Pyrexia
  21. LACTULOSE [Concomitant]
     Active Substance: LACTULOSE
     Indication: Constipation
     Route: 048
     Dates: start: 20220203
  22. MOVICOL [Concomitant]
     Active Substance: POLYETHYLENE GLYCOL 3350\POTASSIUM CHLORIDE\SODIUM BICARBONATE\SODIUM CHLORIDE
     Indication: Constipation
     Route: 048
     Dates: start: 20220203
  23. OXYCODONE [Concomitant]
     Active Substance: OXYCODONE
     Indication: Pain prophylaxis
     Route: 048
     Dates: start: 20220119, end: 20220210
  24. OXYCODONE [Concomitant]
     Active Substance: OXYCODONE
     Indication: Pain prophylaxis
     Route: 048
     Dates: start: 20220211, end: 20220303
  25. OXYCODONE [Concomitant]
     Active Substance: OXYCODONE
     Indication: Pain prophylaxis
     Route: 048
     Dates: start: 20220304

REACTIONS (1)
  - Pyrexia [Recovered/Resolved]

NARRATIVE: CASE EVENT DATE: 20220314
